FAERS Safety Report 14935706 (Version 1)
Quarter: 2018Q2

REPORT INFORMATION
  Report Type: Spontaneous
  Country: GB (occurrence: GB)
  Receive Date: 20180524
  Receipt Date: 20180524
  Transmission Date: 20180711
  Serious: Yes (Death)
  Sender: FDA-Public Use
  Company Number: GB-EPIC PHARMA LLC-2018EPC00273

PATIENT
  Age: 30 Day
  Sex: Female
  Weight: 2.72 kg

DRUGS (2)
  1. METHADONE HYDROCHLORIDE. [Suspect]
     Active Substance: METHADONE HYDROCHLORIDE
     Route: 064
  2. METHADONE HYDROCHLORIDE. [Suspect]
     Active Substance: METHADONE HYDROCHLORIDE
     Dosage: UNK
     Route: 063

REACTIONS (3)
  - Toxicity to various agents [Fatal]
  - Death [Fatal]
  - Foetal exposure timing unspecified [Fatal]
